FAERS Safety Report 8001232-6 (Version None)
Quarter: 2011Q4

REPORT INFORMATION
  Report Type: 
  Country: None (occurrence: None)
  Receive Date: 20111220
  Receipt Date: 20111208
  Transmission Date: 20120403
  Serious: Yes (Other)
  Sender: FDA-Public Use
  Company Number: 2011SP057541

PATIENT
  Sex: Male

DRUGS (3)
  1. VICTRELIS [Suspect]
     Indication: HEPATITIS C
     Dates: start: 20111025, end: 20111114
  2. PEG-INTRON [Suspect]
     Indication: HEPATITIS C
     Dates: start: 20110926, end: 20111114
  3. RIBAVIRIN [Suspect]
     Indication: HEPATITIS C
     Dates: start: 20110926, end: 20111114

REACTIONS (19)
  - HYPOPHAGIA [None]
  - BLOOD PRESSURE DECREASED [None]
  - SPEECH DISORDER [None]
  - PROCTALGIA [None]
  - VIRAL INFECTION [None]
  - RETCHING [None]
  - DYSSTASIA [None]
  - VISION BLURRED [None]
  - DISEASE RECURRENCE [None]
  - DIARRHOEA [None]
  - GAIT DISTURBANCE [None]
  - GINGIVAL ATROPHY [None]
  - FLUID INTAKE REDUCED [None]
  - LOSS OF CONSCIOUSNESS [None]
  - VOMITING [None]
  - WEIGHT DECREASED [None]
  - EMOTIONAL DISORDER [None]
  - NAUSEA [None]
  - MOVEMENT DISORDER [None]
